FAERS Safety Report 18378235 (Version 1)
Quarter: 2020Q4

REPORT INFORMATION
  Report Type: Spontaneous
  Country: JP (occurrence: JP)
  Receive Date: 20201013
  Receipt Date: 20201013
  Transmission Date: 20210114
  Serious: No
  Sender: FDA-Public Use
  Company Number: JP-JNJFOC-A-CH2018-172643

PATIENT
  Age: 61 Year
  Sex: Female

DRUGS (13)
  1. TRAZENTA [Concomitant]
     Active Substance: LINAGLIPTIN
  2. LANSOPRAZOLE. [Concomitant]
     Active Substance: LANSOPRAZOLE
  3. AZOSEMIDE [Concomitant]
     Active Substance: AZOSEMIDE
  4. REVATIO [Concomitant]
     Active Substance: SILDENAFIL CITRATE
     Indication: PULMONARY ARTERIAL HYPERTENSION
     Dosage: 60 MG, UNK
     Dates: start: 20180409
  5. CODEINE PHOSPHATE HEMIHYDRATE [Concomitant]
     Active Substance: CODEINE PHOSPHATE
  6. PREDNISOLONE. [Concomitant]
     Active Substance: PREDNISOLONE
  7. MAGMITT [Concomitant]
     Active Substance: MAGNESIUM OXIDE
  8. OPSUMIT [Suspect]
     Active Substance: MACITENTAN
     Indication: PULMONARY ARTERIAL HYPERTENSION
     Dosage: 10 MG, QD
     Route: 048
     Dates: start: 20180409, end: 20180606
  9. URSODEOXYCHOLIC ACID [Concomitant]
     Active Substance: URSODIOL
  10. AMBROXOL HYDROCHLORIDE [Concomitant]
     Active Substance: AMBROXOL HYDROCHLORIDE
  11. SAMSCA [Concomitant]
     Active Substance: TOLVAPTAN
  12. ATORVASTATIN [Concomitant]
     Active Substance: ATORVASTATIN
  13. OXYGEN. [Concomitant]
     Active Substance: OXYGEN

REACTIONS (2)
  - Left ventricular failure [Recovering/Resolving]
  - Anaemia [Recovered/Resolved]

NARRATIVE: CASE EVENT DATE: 20180412
